FAERS Safety Report 8225164-3 (Version None)
Quarter: 2012Q1

REPORT INFORMATION
  Report Type: 
  Country: None (occurrence: None)
  Receive Date: 20120319
  Receipt Date: 20120307
  Transmission Date: 20120608
  Serious: Yes (Hospitalization)
  Sender: FDA-Public Use
  Company Number: MPS1-1000650

PATIENT
  Age: 19 Year
  Sex: Male
  Weight: 46.2 kg

DRUGS (1)
  1. ALDURAZYME [Suspect]
     Indication: MUCOPOLYSACCHARIDOSIS I
     Dosage: 26.1 MG, QW, INTRAVENOUS
     Route: 042
     Dates: start: 20040801

REACTIONS (2)
  - RESPIRATORY DISORDER [None]
  - SPINAL CORD COMPRESSION [None]
